FAERS Safety Report 8813073 (Version 3)
Quarter: 2012Q4

REPORT INFORMATION
  Report Type: 
  Country: US (occurrence: US)
  Receive Date: 20120927
  Receipt Date: 20121207
  Transmission Date: 20130627
  Serious: Yes (Other)
  Sender: FDA-Public Use
  Company Number: US-US-EMD SERONO, INC.-7162430

PATIENT
  Age: 47 Year
  Sex: Female

DRUGS (7)
  1. EGRIFTA [Suspect]
     Indication: LIPODYSTROPHY ACQUIRED
     Route: 058
     Dates: start: 201208, end: 20120918
  2. EGRIFTA [Suspect]
     Route: 058
  3. SUSTIVA [Concomitant]
     Indication: HIV TEST POSITIVE
  4. ISENTRESS [Concomitant]
     Indication: HIV TEST POSITIVE
  5. VITAMIN D [Concomitant]
     Indication: SUPPLEMENTATION THERAPY
  6. TOPICAL MEDICATION [Concomitant]
     Indication: RASH
  7. TRIAMTERINE/HCTZ [Concomitant]
     Indication: OEDEMA PERIPHERAL

REACTIONS (2)
  - Nephrolithiasis [Recovering/Resolving]
  - Hydronephrosis [Recovering/Resolving]
